FAERS Safety Report 5834795-7 (Version None)
Quarter: 2008Q3

REPORT INFORMATION
  Report Type: 
  Country: None (occurrence: None)
  Receive Date: 20080801
  Receipt Date: 20080724
  Transmission Date: 20090109
  Serious: Yes (Disabling)
  Sender: FDA-Public Use
  Company Number: 130-21880-08071543

PATIENT
  Age: 70 Year
  Sex: Female

DRUGS (1)
  1. REVLIMID [Suspect]
     Indication: 5Q MINUS SYNDROME
     Dosage: 10 MG, ORAL
     Route: 048
     Dates: start: 20080708, end: 20080717

REACTIONS (2)
  - PRURITUS GENERALISED [None]
  - RASH GENERALISED [None]
